FAERS Safety Report 8967928 (Version 1)
Quarter: 2012Q4

REPORT INFORMATION
  Report Type: 
  Country: NZ (occurrence: NZ)
  Receive Date: 20121217
  Receipt Date: 20121217
  Transmission Date: 20130627
  Serious: Yes (Other)
  Sender: FDA-Public Use
  Company Number: NZ-COVIDIEN/TYCO HEALTHCARE/MALLINCKRODT-T201204332

PATIENT
  Age: 29 Year
  Sex: Female

DRUGS (3)
  1. MORPHINE [Suspect]
     Indication: EPIDURAL ANAESTHESIA
     Dosage: UNK
     Route: 008
  2. ROPIVACAINE [Suspect]
     Indication: EPIDURAL ANAESTHESIA
     Dosage: 0.2%
     Route: 008
  3. BUPIVICAINE [Suspect]
     Indication: SPINAL ANAESTHESIA
     Dosage: 2.4 ml, 0.5%
     Route: 008

REACTIONS (1)
  - Arachnoiditis [Not Recovered/Not Resolved]
